FAERS Safety Report 6059525-8 (Version None)
Quarter: 2009Q1

REPORT INFORMATION
  Report Type: 
  Country: None (occurrence: None)
  Receive Date: 20090130
  Receipt Date: 20090122
  Transmission Date: 20090719
  Serious: Yes (Hospitalization, Other)
  Sender: FDA-Public Use
  Company Number: US-ELI_LILLY_AND_COMPANY-US200901003762

PATIENT
  Sex: Female

DRUGS (3)
  1. HUMULIN R [Suspect]
     Indication: TYPE 1 DIABETES MELLITUS
     Dosage: UNK, AS NEEDED
     Dates: start: 20080101
  2. LANTUS [Concomitant]
     Indication: TYPE 1 DIABETES MELLITUS
     Dosage: 5 MG, EACH EVENING
     Dates: start: 20080101
  3. PRANDIN [Concomitant]
     Indication: TYPE 1 DIABETES MELLITUS
     Dosage: 2 MG, 3/D
     Dates: start: 20080101

REACTIONS (8)
  - ANOREXIA [None]
  - ASTHENIA [None]
  - BLOOD GLUCOSE INCREASED [None]
  - CLOSTRIDIAL INFECTION [None]
  - DEFAECATION URGENCY [None]
  - DEHYDRATION [None]
  - DIARRHOEA [None]
  - HOSPITALISATION [None]
